FAERS Safety Report 8210190-0 (Version None)
Quarter: 2012Q1

REPORT INFORMATION
  Report Type: 
  Country: None (occurrence: None)
  Receive Date: 20120314
  Receipt Date: 20120112
  Transmission Date: 20120608
  Serious: No
  Sender: FDA-Public Use
  Company Number: US-ASTRAZENECA-2012SE02876

PATIENT
  Age: 77 Year
  Sex: Male
  Weight: 93.4 kg

DRUGS (8)
  1. LOTENSIN [Concomitant]
  2. AMBIEN [Concomitant]
  3. VICODIN [Concomitant]
  4. ACTOS [Concomitant]
  5. NORVASC [Concomitant]
  6. NEXIUM [Concomitant]
  7. TOPROL-XL [Suspect]
     Route: 048
  8. CRESTOR [Suspect]
     Route: 048

REACTIONS (1)
  - PAIN [None]
